FAERS Safety Report 16246889 (Version 1)
Quarter: 2019Q2

REPORT INFORMATION
  Report Type: Spontaneous
  Country: NL (occurrence: NL)
  Receive Date: 20190427
  Receipt Date: 20190427
  Transmission Date: 20190711
  Serious: Yes (Other)
  Sender: FDA-Public Use
  Company Number: NL-ACCORD-124447

PATIENT
  Age: 11 Year
  Sex: Male

DRUGS (1)
  1. MITOMYCIN. [Suspect]
     Active Substance: MITOMYCIN
     Indication: GLAUCOMA
     Route: 047

REACTIONS (5)
  - Hypotony of eye [Recovered/Resolved]
  - Product use issue [Unknown]
  - Flat anterior chamber of eye [Recovered/Resolved]
  - Intentional product use issue [Unknown]
  - Off label use [Unknown]
